FAERS Safety Report 7605245-5 (Version None)
Quarter: 2011Q3

REPORT INFORMATION
  Report Type: 
  Country: None (occurrence: None)
  Receive Date: 20110712
  Receipt Date: 20110712
  Transmission Date: 20111222
  Serious: Yes (Hospitalization)
  Sender: FDA-Public Use
  Company Number: None

PATIENT
  Age: 36 Year
  Sex: Male
  Weight: 76.9 kg

DRUGS (1)
  1. CARBAMAZEPINE [Suspect]
     Indication: PAIN
     Dosage: 200 MG BID PO
     Route: 048
     Dates: start: 20110520, end: 20110622

REACTIONS (3)
  - EOSINOPHILIA [None]
  - RASH [None]
  - ANGIOEDEMA [None]
